FAERS Safety Report 19502902 (Version 1)
Quarter: 2021Q3

REPORT INFORMATION
  Report Type: Report from Study
  Country: US (occurrence: US)
  Receive Date: 20210707
  Receipt Date: 20210707
  Transmission Date: 20211014
  Serious: Yes (Hospitalization, Other)
  Sender: FDA-Public Use
  Company Number: US-TAKEDA-2021TUS041008

PATIENT
  Age: 25 Year
  Sex: Male

DRUGS (4)
  1. DARVADSTROCEL. [Suspect]
     Active Substance: DARVADSTROCEL
     Indication: ANAL FISTULA
  2. VEDOLIZUMAB [Suspect]
     Active Substance: VEDOLIZUMAB
     Indication: CROHN^S DISEASE
     Dosage: UNK
     Route: 042
     Dates: start: 202102
  3. VEDOLIZUMAB [Suspect]
     Active Substance: VEDOLIZUMAB
     Indication: ANAL FISTULA
     Dosage: UNK, Q4WEEKS
     Route: 042
     Dates: start: 202104
  4. DARVADSTROCEL. [Suspect]
     Active Substance: DARVADSTROCEL
     Indication: CROHN^S DISEASE
     Dosage: UNK
     Route: 005
     Dates: start: 202102

REACTIONS (6)
  - Loss of consciousness [Unknown]
  - Intestinal obstruction [Unknown]
  - Gastrointestinal scarring [Unknown]
  - Crohn^s disease [Unknown]
  - Acne [Unknown]
  - Off label use [Unknown]

NARRATIVE: CASE EVENT DATE: 202102
